FAERS Safety Report 8136103-8 (Version None)
Quarter: 2012Q1

REPORT INFORMATION
  Report Type: 
  Country: None (occurrence: None)
  Receive Date: 20120214
  Receipt Date: 20111104
  Transmission Date: 20120608
  Serious: Yes (Other)
  Sender: FDA-Public Use
  Company Number: US-COVIDIEN/TYCO HEALTHCARE/MALLINCKRODT-T201102289

PATIENT
  Sex: Male
  Weight: 104.31 kg

DRUGS (5)
  1. FENTANYL-100 [Suspect]
     Dosage: 50 UG/HR, UNK
     Route: 062
     Dates: start: 20110906
  2. OXYCODONE HCL [Concomitant]
     Indication: BREAKTHROUGH PAIN
     Dosage: 5 MG, PRN
     Dates: end: 20110906
  3. FENTANYL-100 [Suspect]
     Indication: PAIN
     Dosage: 75 UG/HR, Q 3 DAYS
     Route: 062
     Dates: start: 20110909, end: 20110913
  4. LISINOPRIL [Concomitant]
     Indication: BLOOD PRESSURE
     Dosage: 20 MG, QD
     Route: 048
     Dates: end: 20110907
  5. OXYCONTIN [Concomitant]
     Dosage: UNK, TID
     Dates: end: 20110906

REACTIONS (3)
  - OEDEMA PERIPHERAL [None]
  - LOCALISED OEDEMA [None]
  - DRUG EFFECT DECREASED [None]
